FAERS Safety Report 9712829 (Version 1)
Quarter: 2013Q4

REPORT INFORMATION
  Report Type: Spontaneous
  Country: US (occurrence: US)
  Receive Date: 20131126
  Receipt Date: 20131126
  Transmission Date: 20140711
  Serious: No
  Sender: FDA-Public Use
  Company Number: US-BRISTOL-MYERS SQUIBB COMPANY-18924506

PATIENT
  Age: 54 Year
  Sex: Female
  Weight: 70.29 kg

DRUGS (3)
  1. BYDUREON [Suspect]
     Indication: TYPE 2 DIABETES MELLITUS
     Dosage: NO OF INJ:6
     Dates: start: 2013
  2. LANTUS [Concomitant]
  3. NOVOLOG [Concomitant]

REACTIONS (2)
  - Injection site swelling [Not Recovered/Not Resolved]
  - Decreased appetite [Not Recovered/Not Resolved]
